FAERS Safety Report 12505588 (Version 1)
Quarter: 2016Q2

REPORT INFORMATION
  Report Type: Spontaneous
  Country: TW (occurrence: TW)
  Receive Date: 20160628
  Receipt Date: 20160628
  Transmission Date: 20160815
  Serious: Yes (Other)
  Sender: FDA-Public Use
  Company Number: TW-PFIZER INC-2016312920

PATIENT
  Age: 46 Year
  Sex: Female

DRUGS (5)
  1. ETORICOXIB [Concomitant]
     Active Substance: ETORICOXIB
     Indication: RHEUMATOID ARTHRITIS
     Dosage: 60 MG, QD
     Route: 048
  2. PREDNISOLONE. [Concomitant]
     Active Substance: PREDNISOLONE
     Indication: RHEUMATOID ARTHRITIS
     Dosage: 5 MG, QD
     Route: 048
  3. FERROUS GLUCO-B [Concomitant]
     Indication: ANAEMIA
     Dosage: 1 DF, QD
     Route: 048
  4. XELJANZ [Suspect]
     Active Substance: TOFACITINIB CITRATE
     Indication: RHEUMATOID ARTHRITIS
     Dosage: 5 MG, 2X/DAY
     Route: 048
     Dates: start: 20150506, end: 20160615
  5. MTX [Concomitant]
     Active Substance: METHOTREXATE SODIUM
     Indication: RHEUMATOID ARTHRITIS
     Dosage: 7.5 MG, QW
     Route: 048

REACTIONS (1)
  - Endometrial adenocarcinoma [Not Recovered/Not Resolved]

NARRATIVE: CASE EVENT DATE: 2015
